FAERS Safety Report 8017250-8 (Version None)
Quarter: 2012Q1

REPORT INFORMATION
  Report Type: 
  Country: None (occurrence: None)
  Receive Date: 20120102
  Receipt Date: 20111223
  Transmission Date: 20120608
  Serious: Yes (Hospitalization)
  Sender: FDA-Public Use
  Company Number: PHHY2011DK113309

PATIENT
  Sex: Female

DRUGS (3)
  1. ENTACAPONE [Suspect]
     Dosage: UNK
  2. SEROQUEL [Concomitant]
  3. MADOPAR [Suspect]
     Indication: PARKINSONISM
     Dosage: 125 UKN, UNK

REACTIONS (5)
  - HALLUCINATION [None]
  - NECK PAIN [None]
  - AGGRESSION [None]
  - DYSKINESIA [None]
  - PARANOIA [None]
